FAERS Safety Report 5143384-1 (Version None)
Quarter: 2006Q4

REPORT INFORMATION
  Report Type: 
  Country: None (occurrence: None)
  Receive Date: 20061103
  Receipt Date: 20061026
  Transmission Date: 20070319
  Serious: Yes (Hospitalization, Other)
  Sender: FDA-Public Use
  Company Number: US-JNJFOC-20061006393

PATIENT
  Sex: Female
  Weight: 68.04 kg

DRUGS (10)
  1. INFLIXIMAB [Suspect]
     Indication: RHEUMATOID ARTHRITIS
     Route: 042
  2. METHOTREXATE [Concomitant]
  3. PREDNISONE TAB [Concomitant]
  4. DARVOCET [Concomitant]
  5. NORVASC [Concomitant]
  6. LOPRESSOR [Concomitant]
  7. FOLIC ACID [Concomitant]
  8. CLARINEX [Concomitant]
  9. ESTRATEST [Concomitant]
     Dosage: 1.25/2.5 DAILY
  10. CYMBALTA [Concomitant]

REACTIONS (2)
  - CROHN'S DISEASE [None]
  - RENAL CELL CARCINOMA STAGE UNSPECIFIED [None]
